FAERS Safety Report 25895066 (Version 1)
Quarter: 2025Q4

REPORT INFORMATION
  Report Type: Spontaneous
  Country: US (occurrence: US)
  Receive Date: 20251008
  Receipt Date: 20251008
  Transmission Date: 20260117
  Serious: No
  Sender: JOHNSON AND JOHNSON
  Company Number: US-JNJFOC-20251001394

PATIENT
  Age: 4 Decade

DRUGS (1)
  1. SPRAVATO [Suspect]
     Active Substance: ESKETAMINE
     Indication: Product used for unknown indication
     Route: 045
     Dates: start: 202406, end: 202412

REACTIONS (5)
  - Apathy [Not Recovered/Not Resolved]
  - Stress [Not Recovered/Not Resolved]
  - Adverse event [Not Recovered/Not Resolved]
  - Social problem [Not Recovered/Not Resolved]
  - Irritability [Not Recovered/Not Resolved]

NARRATIVE: CASE EVENT DATE: 20240601
